FAERS Safety Report 9192178 (Version 1)
Quarter: 2013Q1

REPORT INFORMATION
  Report Type: Spontaneous
  Country: US (occurrence: US)
  Receive Date: 20130327
  Receipt Date: 20130327
  Transmission Date: 20140127
  Serious: Yes (Hospitalization, Other)
  Sender: FDA-Public Use
  Company Number: PHEH2013US000966

PATIENT
  Age: 81 Year
  Sex: Female

DRUGS (23)
  1. AFINITOR [Suspect]
     Indication: BREAST CANCER
     Dosage: 5 MG, DAILY
     Route: 048
     Dates: start: 20120925
  2. AFINITOR [Suspect]
     Dosage: UNK
     Route: 048
     Dates: start: 201212
  3. EXEMESTANE [Concomitant]
     Dosage: 25 MG, DAILY
     Route: 048
     Dates: start: 201212
  4. AMBIEN [Concomitant]
     Dosage: 6.25 MG, UNK
     Route: 048
  5. BUDEPRION [Concomitant]
     Dosage: 150 MG, DAILY
     Route: 048
  6. EMLA                               /00675501/ [Concomitant]
     Route: 061
  7. MILK OF MAGNESIA [Concomitant]
     Dosage: 30 UNK, UNK
     Route: 048
  8. OCUVITE                            /01053801/ [Concomitant]
     Dosage: 2 DF, DAILY
     Route: 048
  9. PRENATAL VITAMINS [Concomitant]
     Dosage: 1 DF, DAILY
     Route: 048
  10. ULORIC [Concomitant]
     Dosage: 40 MG, DAILY
     Route: 048
  11. ACETAMINOPHEN [Concomitant]
     Dosage: 500 MG, EVERY 4 HOURS
  12. FENTANYL [Concomitant]
     Dosage: 12 UG PER HOUR EVERY THIRD DAY
     Route: 062
  13. FUROSEMIDE [Concomitant]
     Dosage: 40 MG, QOD
     Route: 048
  14. MEGESTROL [Concomitant]
     Dosage: 10 ML, DAILY
     Route: 048
  15. POTASSIUM CHLORIDE [Concomitant]
     Dosage: 20 MEQ, DAILY
     Route: 048
  16. TRAMADOL [Concomitant]
     Dosage: 200 MG, DAILY
     Route: 048
  17. PRIALT [Concomitant]
     Route: 037
  18. COUMADINE [Concomitant]
     Dosage: 2.5 MG AND 5 MG ALTERNATING EVERY OTHER DAY
  19. BUPROPION [Concomitant]
  20. MAGNESIUM [Concomitant]
  21. MULTIVITAMINS [Concomitant]
  22. CARVEDILOL [Concomitant]
  23. LASIX [Concomitant]
     Dosage: 40 MG, QOD

REACTIONS (19)
  - Atelectasis [Unknown]
  - Chest pain [Recovering/Resolving]
  - Cardiac failure congestive [Recovering/Resolving]
  - Pleural effusion [Recovering/Resolving]
  - Dyspnoea [Recovering/Resolving]
  - Oedema peripheral [Recovering/Resolving]
  - Mitral valve calcification [Unknown]
  - Aortic valve calcification [Unknown]
  - Dilatation atrial [Unknown]
  - Pulmonary hypertension [Unknown]
  - Orthopnoea [Recovering/Resolving]
  - Medical device complication [Unknown]
  - Coronary artery disease [Unknown]
  - Cardiomyopathy [Unknown]
  - Renal failure chronic [Unknown]
  - Pneumonia [Unknown]
  - Toxicity to various agents [Unknown]
  - Haemoglobin decreased [Unknown]
  - Leukocytosis [Unknown]
